FAERS Safety Report 6692722-7 (Version None)
Quarter: 2010Q2

REPORT INFORMATION
  Report Type: 
  Country: None (occurrence: None)
  Receive Date: 20100422
  Receipt Date: 20100413
  Transmission Date: 20101027
  Serious: Yes (Other)
  Sender: FDA-Public Use
  Company Number: US-ROCHE-679522

PATIENT
  Sex: Female
  Weight: 80.7 kg

DRUGS (22)
  1. ACCUTANE [Suspect]
     Route: 065
     Dates: start: 19870119, end: 19870626
  2. ACCUTANE [Suspect]
     Route: 065
     Dates: start: 19870807, end: 19880105
  3. ACCUTANE [Suspect]
     Route: 065
     Dates: start: 19880312, end: 19880824
  4. ACCUTANE [Suspect]
     Route: 065
     Dates: start: 19881018, end: 19890301
  5. ACCUTANE [Suspect]
     Route: 065
     Dates: start: 19900301, end: 19900811
  6. ACCUTANE [Suspect]
     Route: 065
     Dates: start: 19930505, end: 19931101
  7. ACCUTANE [Suspect]
     Route: 065
     Dates: start: 19970513, end: 19971101
  8. ACCUTANE [Suspect]
     Route: 065
     Dates: start: 19971210, end: 19980801
  9. ACCUTANE [Suspect]
     Route: 065
     Dates: start: 19990201, end: 19990801
  10. ACCUTANE [Suspect]
     Route: 065
     Dates: start: 20000401, end: 20001001
  11. ACCUTANE [Suspect]
     Route: 065
     Dates: start: 20010101, end: 20010601
  12. ACCUTANE [Suspect]
     Route: 065
     Dates: start: 20010901, end: 20020301
  13. ACCUTANE [Suspect]
     Route: 065
     Dates: start: 20021001, end: 20030201
  14. AMNESTEEM [Suspect]
     Dosage: STRENGTH: 40 MG AND 10 MG
     Route: 065
     Dates: start: 20041217, end: 20050719
  15. AMNESTEEM [Suspect]
     Route: 065
     Dates: start: 20070302, end: 20070402
  16. SOTRET [Suspect]
     Route: 065
     Dates: start: 20070402, end: 20070801
  17. ISOTRETINOIN GEL 0.05% [Concomitant]
     Indication: ACNE
     Route: 065
     Dates: start: 20011117, end: 20020309
  18. CLEOCIN T GEL [Concomitant]
  19. RETIN-A [Concomitant]
  20. ALDACTONE [Concomitant]
  21. MINOCIN [Concomitant]
  22. E-MYCIN [Concomitant]

REACTIONS (32)
  - ADRENAL CYST [None]
  - ALOPECIA [None]
  - ANXIETY [None]
  - BASAL CELL CARCINOMA [None]
  - CHEILITIS [None]
  - CHOLELITHIASIS [None]
  - COLITIS COLLAGENOUS [None]
  - DEPRESSION [None]
  - DRY SKIN [None]
  - ECONOMIC PROBLEM [None]
  - FEELING OF DESPAIR [None]
  - HAEMANGIOMA OF LIVER [None]
  - HIATUS HERNIA [None]
  - HYPOPHAGIA [None]
  - IMPAIRED WORK ABILITY [None]
  - INFLAMMATORY BOWEL DISEASE [None]
  - INSOMNIA [None]
  - INTESTINAL OBSTRUCTION [None]
  - LIVER DISORDER [None]
  - LYMPHOMA [None]
  - MUSCLE SPASMS [None]
  - NECK INJURY [None]
  - NEOPLASM MALIGNANT [None]
  - NUTRITIONAL CONDITION ABNORMAL [None]
  - ORAL HERPES [None]
  - RASH [None]
  - RESTLESSNESS [None]
  - SUNBURN [None]
  - UTERINE LEIOMYOMA [None]
  - VARICELLA [None]
  - WEIGHT DECREASED [None]
  - XEROSIS [None]
